FAERS Safety Report 6826444-6 (Version None)
Quarter: 2010Q3

REPORT INFORMATION
  Report Type: 
  Country: None (occurrence: None)
  Receive Date: 20100709
  Receipt Date: 20100630
  Transmission Date: 20110219
  Serious: Yes (Hospitalization)
  Sender: FDA-Public Use
  Company Number: US-JNJFOC-20100700608

PATIENT
  Sex: Female
  Weight: 54.43 kg

DRUGS (2)
  1. TOPAMAX [Suspect]
     Indication: MIGRAINE PROPHYLAXIS
     Dosage: 100MG/TABLET/200 MG/ 1/2 TABLET TWICE A DAY.
     Route: 048
  2. TOPAMAX [Suspect]
     Route: 048

REACTIONS (3)
  - NAUSEA [None]
  - REPRODUCTIVE TRACT DISORDER [None]
  - WRONG TECHNIQUE IN DRUG USAGE PROCESS [None]
